FAERS Safety Report 9500707 (Version 2)
Quarter: 2013Q3

REPORT INFORMATION
  Report Type: Spontaneous
  Country: GR (occurrence: GR)
  Receive Date: 20130905
  Receipt Date: 20130910
  Transmission Date: 20140515
  Serious: Yes (Death)
  Sender: FDA-Public Use
  Company Number: GR-009507513-1309GRC000651

PATIENT
  Age: 45 Year
  Sex: Female
  Weight: 53 kg

DRUGS (10)
  1. ROCURONIUM BROMIDE [Suspect]
     Dosage: 1 MG/KG, UNK
  2. PROPOFOL [Concomitant]
     Indication: ANAESTHESIA
     Dosage: 2.5 MG/KG, UNK
  3. FENTANYL [Concomitant]
     Indication: ANAESTHESIA
     Dosage: 2 MICROGRAM PER KILOGRAM, UNK
  4. LIDOCAINE [Concomitant]
     Dosage: 1 MG/KG, UNK
  5. DESFLURANE [Concomitant]
     Indication: MAINTENANCE OF ANAESTHESIA
     Dosage: 4-6%
  6. OXYGEN [Concomitant]
     Indication: MAINTENANCE OF ANAESTHESIA
     Dosage: 60% MIXTURE IN AIR
  7. ELECTROLYTES (UNSPECIFIED) (+) SODIUM LACTATE [Concomitant]
     Indication: CARDIOVASCULAR EVENT PROPHYLAXIS
     Dosage: RINGER^S LACTATED SOLUTION
  8. BLOOD, PLASMA [Concomitant]
     Dosage: FROZEN PLASMA
  9. ALBUMIN HUMAN [Concomitant]
  10. REMIFENTANIL HYDROCHLORIDE [Concomitant]
     Dosage: 0.05-0.1 MCG/KG/MIN

REACTIONS (1)
  - Lymphangioleiomyomatosis [Fatal]
